FAERS Safety Report 4803796-X (Version None)
Quarter: 2005Q3

REPORT INFORMATION
  Report Type: 
  Country: None (occurrence: None)
  Receive Date: 20050920
  Receipt Date: 20050816
  Transmission Date: 20060218
  Serious: No
  Sender: FDA-Public Use
  Company Number: US-YAMANOUCHI-YPA20050421

PATIENT
  Age: 49 Year
  Sex: Female

DRUGS (3)
  1. VESICARE [Suspect]
     Indication: INCONTINENCE
     Dosage: 5 MG QD PO
     Route: 048
     Dates: start: 20050806, end: 20050813
  2. VESICARE [Suspect]
     Indication: MICTURITION URGENCY
     Dosage: 5 MG QD PO
     Route: 048
     Dates: start: 20050806, end: 20050813
  3. PHYTOESTROGENS [Concomitant]

REACTIONS (1)
  - DRUG INEFFECTIVE [None]
